FAERS Safety Report 6465342-7 (Version None)
Quarter: 2009Q4

REPORT INFORMATION
  Report Type: 
  Country: None (occurrence: None)
  Receive Date: 20091201
  Receipt Date: 20091123
  Transmission Date: 20100525
  Serious: Yes (Death)
  Sender: FDA-Public Use
  Company Number: US-GILEAD-2009-0025642

PATIENT
  Sex: Female

DRUGS (12)
  1. LETAIRIS [Suspect]
     Indication: PULMONARY ARTERIAL HYPERTENSION
     Route: 048
     Dates: start: 20081022, end: 20081115
  2. PROMETHAZINE [Concomitant]
  3. PROVENTIL [Concomitant]
  4. ALBUTEROL [Concomitant]
  5. ADVAIR DISKUS 100/50 [Concomitant]
  6. ASTELIN [Concomitant]
  7. SULFACETAMIDE SODIUM [Concomitant]
  8. MS CONTIN [Concomitant]
  9. ETODOLAC [Concomitant]
  10. LYRICA [Concomitant]
  11. ZOLPIDEM [Concomitant]
  12. NEXIUM [Concomitant]

REACTIONS (1)
  - DEATH [None]
